FAERS Safety Report 19648515 (Version 1)
Quarter: 2021Q3

REPORT INFORMATION
  Report Type: Spontaneous
  Country: US (occurrence: US)
  Receive Date: 20210802
  Receipt Date: 20210802
  Transmission Date: 20211014
  Serious: No
  Sender: FDA-Public Use
  Company Number: US-SA-2021SA253545

PATIENT
  Sex: Female

DRUGS (1)
  1. DUPIXENT [Suspect]
     Active Substance: DUPILUMAB
     Indication: ASTHMA

REACTIONS (5)
  - Abdominal pain upper [Recovering/Resolving]
  - Dehydration [Recovering/Resolving]
  - Chest discomfort [Recovering/Resolving]
  - Anxiety [Recovering/Resolving]
  - Arthralgia [Recovering/Resolving]
